FAERS Safety Report 6855206-9 (Version None)
Quarter: 2010Q3

REPORT INFORMATION
  Report Type: 
  Country: None (occurrence: None)
  Receive Date: 20100718
  Receipt Date: 20100713
  Transmission Date: 20110219
  Serious: Yes (Hospitalization)
  Sender: FDA-Public Use
  Company Number: IT-BRISTOL-MYERS SQUIBB COMPANY-15191042

PATIENT
  Age: 78 Year
  Sex: Female

DRUGS (6)
  1. COUMADIN [Suspect]
     Indication: ATRIAL FIBRILLATION
     Dosage: 1 D.F:1 POSOLOGIC UNIT
     Dates: start: 20080619
  2. ENAPREN [Suspect]
     Indication: HYPERTENSION
     Dosage: ENAPREN 5 MG ORAL TABS 1 D.F:2 POSOLOGIC UNIT
     Route: 048
     Dates: start: 20080601, end: 20100405
  3. ALDACTONE [Suspect]
     Indication: HYPERTENSION
     Dosage: ALDACTONE 100 MG COATED ORAL TABS 1 D.F:1 POSOLOGIC UNIT/DAY
     Route: 048
     Dates: start: 20080601, end: 20100405
  4. LASIX [Suspect]
     Dosage: LASIX 25 MG ORAL TABS 1 D.F:4 POSOLOGIC UNIT/DAY
     Route: 048
     Dates: start: 20080601, end: 20100405
  5. ALLOPURINOL [Concomitant]
     Indication: HYPERURICAEMIA
     Dosage: 1 D.F=5 POSOLOGIC UNITS ZYLORIC 300 MG ORAL TABS
     Route: 048
     Dates: start: 20080801, end: 20100405
  6. LEVOTHYROXINE SODIUM [Concomitant]
     Dosage: EUTIROX 50 MCG ORAL TABS 1 D.F=1 POSOLOGIC UNIT
     Route: 048
     Dates: start: 20080601, end: 20100405

REACTIONS (4)
  - HYPERKALAEMIA [None]
  - INTERNATIONAL NORMALISED RATIO INCREASED [None]
  - PETECHIAE [None]
  - RENAL FAILURE [None]
